FAERS Safety Report 6343554-0 (Version None)
Quarter: 2009Q3

REPORT INFORMATION
  Report Type: 
  Country: None (occurrence: None)
  Receive Date: 20090908
  Receipt Date: 20090704
  Transmission Date: 20100115
  Serious: Yes (Other)
  Sender: FDA-Public Use
  Company Number: DE-PFIZER INC-2009264517

PATIENT
  Age: 37 Year

DRUGS (2)
  1. ATARAX [Suspect]
     Dosage: 500 MG, SINGLE
     Route: 048
     Dates: start: 20090704, end: 20090704
  2. LYRICA [Suspect]
     Dosage: 1125 MG, SINGLE
     Route: 048
     Dates: start: 20090704, end: 20090704

REACTIONS (3)
  - FATIGUE [None]
  - INTENTIONAL OVERDOSE [None]
  - SUICIDE ATTEMPT [None]
